FAERS Safety Report 10732461 (Version 1)
Quarter: 2015Q1

REPORT INFORMATION
  Report Type: Spontaneous
  Country: US (occurrence: US)
  Receive Date: 20150123
  Receipt Date: 20150123
  Transmission Date: 20150721
  Serious: No
  Sender: FDA-Public Use
  Company Number: US-PFIZER INC-2015026993

PATIENT
  Sex: Female

DRUGS (6)
  1. ATENOLOL. [Suspect]
     Active Substance: ATENOLOL
     Dosage: UNK
  2. LOPID [Suspect]
     Active Substance: GEMFIBROZIL
     Dosage: UNK
  3. NIACIN. [Suspect]
     Active Substance: NIACIN
     Dosage: UNK
  4. TETANUS [Suspect]
     Active Substance: UNSPECIFIED INGREDIENT
     Dosage: UNK
  5. ZETIA [Suspect]
     Active Substance: EZETIMIBE
     Dosage: UNK
  6. WELCHOL [Suspect]
     Active Substance: COLESEVELAM HYDROCHLORIDE
     Dosage: UNK

REACTIONS (1)
  - Drug hypersensitivity [Unknown]
